FAERS Safety Report 8200369-6 (Version None)
Quarter: 2012Q1

REPORT INFORMATION
  Report Type: 
  Country: None (occurrence: None)
  Receive Date: 20120306
  Receipt Date: 20120217
  Transmission Date: 20120608
  Serious: Yes (Life-Threatening, Other)
  Sender: FDA-Public Use
  Company Number: 2012P1004757

PATIENT
  Age: 63 Year
  Sex: Male

DRUGS (15)
  1. DALTEPARIN SODIUM [Suspect]
     Indication: THROMBOSIS PROPHYLAXIS
     Dosage: 5,000 IU, QD, SC
     Route: 058
     Dates: start: 20111202, end: 20111203
  2. HYDROCHLOROTHIAZIDE [Concomitant]
  3. FERROUS FUMARATE [Concomitant]
  4. ACETAMINOPHEN [Concomitant]
  5. GABAPENTIN [Concomitant]
  6. METFORMIN HCL [Concomitant]
  7. METOPROLOL SUCCINATE [Concomitant]
  8. MORPHINE SULFATE [Concomitant]
  9. ACETAMINOPHEN W/ CODEINE [Concomitant]
  10. WARFARIN SODIUM [Suspect]
     Indication: THROMBOSIS PROPHYLAXIS
     Dosage: 5 MG, QD, PO
     Route: 048
     Dates: start: 20111201, end: 20111202
  11. LEVOTHYROXINE SODIUM [Concomitant]
  12. CEFAZOLIN [Concomitant]
  13. MORPHINE SULFATE [Concomitant]
  14. DOCUSATE SODIUM [Concomitant]
  15. CANDESARTAN CILEXETIL [Concomitant]

REACTIONS (1)
  - PULMONARY EMBOLISM [None]
